FAERS Safety Report 5694188-2 (Version None)
Quarter: 2008Q2

REPORT INFORMATION
  Report Type: 
  Country: None (occurrence: None)
  Receive Date: 20080402
  Receipt Date: 20080325
  Transmission Date: 20081010
  Serious: Yes (Hospitalization, Other)
  Sender: FDA-Public Use
  Company Number: 2008004925

PATIENT
  Age: 44 Year
  Sex: Female

DRUGS (5)
  1. NICORETTE [Suspect]
     Indication: SMOKING CESSATION THERAPY
     Dosage: 15 MG PATCH IN THE MORNING, TRANSDERMAL
     Route: 062
     Dates: start: 20080217, end: 20080217
  2. ZARATOR ^PARKE-DAVIS^ (ATORVASTATIN CALCIUM) [Concomitant]
  3. EFFEXOR [Concomitant]
  4. CODEINE SUL TAB [Concomitant]
  5. TRAMADOL HCL [Concomitant]

REACTIONS (6)
  - APPLICATION SITE PRURITUS [None]
  - BREAST PAIN [None]
  - COLD SWEAT [None]
  - HEART RATE INCREASED [None]
  - HYPERTENSION [None]
  - MALAISE [None]
